FAERS Safety Report 5144318-6 (Version None)
Quarter: 2006Q4

REPORT INFORMATION
  Report Type: 
  Country: None (occurrence: None)
  Receive Date: 20061030
  Receipt Date: 20061023
  Transmission Date: 20070319
  Serious: Yes (Death)
  Sender: FDA-Public Use
  Company Number: GXBR2006US01953

PATIENT
  Age: 16 Year
  Sex: Male

DRUGS (1)
  1. BUPROPION HCL TABLETS EXTENDED-RELEASE (NGX)(BUPROPION) EXTENDED RELEA [Suspect]
     Indication: DEPRESSION
     Dosage: 150 MG, ORAL
     Route: 048
     Dates: start: 20040601

REACTIONS (2)
  - COMPLETED SUICIDE [None]
  - GUN SHOT WOUND [None]
